FAERS Safety Report 18064215 (Version 1)
Quarter: 2020Q3

REPORT INFORMATION
  Report Type: Spontaneous
  Country: ES (occurrence: ES)
  Receive Date: 20200724
  Receipt Date: 20200724
  Transmission Date: 20201103
  Serious: Yes (Other)
  Sender: FDA-Public Use
  Company Number: ES-SUN PHARMACEUTICAL INDUSTRIES LTD-2020RR-254863

PATIENT
  Age: 28 Year
  Sex: Female

DRUGS (9)
  1. METRONIDAZOLE. [Suspect]
     Active Substance: METRONIDAZOLE
     Indication: ROSACEA
     Dosage: UNK
     Route: 048
  2. METRONIDAZOLE. [Suspect]
     Active Substance: METRONIDAZOLE
     Indication: ROSACEA
     Route: 061
  3. AMOXICILLIN/CLAVULANIC ACID [Suspect]
     Active Substance: AMOXICILLIN\CLAVULANIC ACID
     Indication: ROSACEA
     Dosage: 875/125 MG, TID
     Route: 048
  4. PREDNISONE. [Suspect]
     Active Substance: PREDNISONE
     Indication: INFLAMMATION
     Dosage: 30 MILLIGRAM, DAILY
     Route: 065
  5. ZINC OXIDE. [Suspect]
     Active Substance: ZINC OXIDE
     Indication: ROSACEA
     Dosage: UNK
     Route: 061
  6. PERMETHRIN. [Suspect]
     Active Substance: PERMETHRIN
     Indication: ROSACEA
     Route: 061
  7. MUPIROCIN. [Suspect]
     Active Substance: MUPIROCIN
     Indication: ROSACEA
     Dosage: BID
     Route: 061
  8. ERYTHROMYCIN. [Suspect]
     Active Substance: ERYTHROMYCIN
     Indication: ROSACEA
     Dosage: 1 GRAM, BID
     Route: 048
  9. ERYTHROMYCIN. [Suspect]
     Active Substance: ERYTHROMYCIN
     Indication: ROSACEA
     Route: 061

REACTIONS (3)
  - Drug ineffective [Unknown]
  - Foetal growth restriction [Unknown]
  - Exposure during pregnancy [Unknown]
